FAERS Safety Report 8405701-6 (Version None)
Quarter: 2012Q2

REPORT INFORMATION
  Report Type: 
  Country: None (occurrence: None)
  Receive Date: 20120604
  Receipt Date: 20120526
  Transmission Date: 20120825
  Serious: Yes (Hospitalization)
  Sender: FDA-Public Use
  Company Number: US-PAR PHARMACEUTICAL, INC-2012SCPR004403

PATIENT

DRUGS (2)
  1. PHENAZOPYRIDINE HCL TAB [Concomitant]
     Indication: DYSURIA
     Dosage: UNK, UNKNOWN
     Route: 065
  2. CIPROFLOXACIN EXTENDED RELEASE [Suspect]
     Indication: URINARY TRACT INFECTION
     Dosage: UNK, UNKNOWN
     Route: 065

REACTIONS (1)
  - GUILLAIN-BARRE SYNDROME [None]
